FAERS Safety Report 25367405 (Version 1)
Quarter: 2025Q2

REPORT INFORMATION
  Report Type: Spontaneous
  Country: IN (occurrence: IN)
  Receive Date: 20250528
  Receipt Date: 20250528
  Transmission Date: 20250717
  Serious: Yes (Other)
  Sender: ZYDUS PHARM
  Company Number: IN-ZYDUS-IN-ZYDUS-124074

PATIENT

DRUGS (1)
  1. HYDROXYCHLOROQUINE [Suspect]
     Active Substance: HYDROXYCHLOROQUINE
     Indication: Prophylaxis
     Route: 065

REACTIONS (2)
  - Impetigo herpetiformis [Recovered/Resolved]
  - Maternal exposure during pregnancy [Unknown]
